FAERS Safety Report 6653884-0 (Version None)
Quarter: 2010Q1

REPORT INFORMATION
  Report Type: 
  Country: None (occurrence: None)
  Receive Date: 20100326
  Receipt Date: 20100302
  Transmission Date: 20100710
  Serious: Yes (Other)
  Sender: FDA-Public Use
  Company Number: PL-JNJFOC-20100301550

PATIENT
  Age: 57 Year
  Sex: Female

DRUGS (8)
  1. DOXORUBICIN HCL [Suspect]
     Indication: LEUKAEMIA PLASMACYTIC
     Dosage: DAYS 1-4 OF 21 DAY CYCLE
     Route: 042
  2. DOXORUBICIN HCL [Suspect]
     Route: 042
  3. BORTEZOMIB [Suspect]
     Indication: LEUKAEMIA PLASMACYTIC
     Dosage: DAYS 1, 4, 8, 11 OF 21 DAY CYCLE
  4. BORTEZOMIB [Suspect]
  5. DEXAMETHASONE [Suspect]
     Indication: LEUKAEMIA PLASMACYTIC
  6. DEXAMETHASONE [Suspect]
     Dosage: DAYS 1-4 OF 21 DAY CYCLE
  7. CYCLOPHOSPHAMIDE [Concomitant]
     Route: 065
  8. MELPHALAN HYDROCHLORIDE [Concomitant]
     Route: 065

REACTIONS (15)
  - CONSTIPATION [None]
  - DIARRHOEA [None]
  - FATIGUE [None]
  - HERPES ZOSTER [None]
  - HYPOKALAEMIA [None]
  - HYPONATRAEMIA [None]
  - HYPOTENSION [None]
  - INFECTION [None]
  - INTESTINAL OBSTRUCTION [None]
  - NEUROPATHY PERIPHERAL [None]
  - NEUTROPENIA [None]
  - PARAESTHESIA [None]
  - THROMBOCYTOPENIA [None]
  - TRANSAMINASES INCREASED [None]
  - VISUAL IMPAIRMENT [None]
